FAERS Safety Report 25833421 (Version 1)
Quarter: 2025Q3

REPORT INFORMATION
  Report Type: Spontaneous
  Country: AU (occurrence: AU)
  Receive Date: 20250922
  Receipt Date: 20250922
  Transmission Date: 20251020
  Serious: Yes (Hospitalization)
  Sender: SANDOZ
  Company Number: AU-BEH-2025216799

PATIENT
  Age: 84 Year
  Sex: Female

DRUGS (2)
  1. DENOSUMAB [Suspect]
     Active Substance: DENOSUMAB
     Indication: Osteoporosis
     Route: 065
  2. IRON [Suspect]
     Active Substance: IRON
     Indication: Iron deficiency
     Route: 065

REACTIONS (6)
  - Muscle twitching [Recovered/Resolved]
  - Drug interaction [Unknown]
  - Hypophosphataemia [Unknown]
  - Hypocalcaemia [Recovered/Resolved]
  - Fatigue [Recovered/Resolved]
  - Muscle spasms [Recovered/Resolved]
